FAERS Safety Report 21851421 (Version 1)
Quarter: 2023Q1

REPORT INFORMATION
  Report Type: Report from Study
  Country: IT (occurrence: IT)
  Receive Date: 20230112
  Receipt Date: 20230112
  Transmission Date: 20230417
  Serious: Yes (Death, Hospitalization)
  Sender: FDA-Public Use
  Company Number: IT-CELLTRION INC.-2022IT002405

PATIENT

DRUGS (22)
  1. RITUXIMAB [Suspect]
     Active Substance: RITUXIMAB
     Indication: Diffuse large B-cell lymphoma
     Dosage: 375 MG/M2, EVERY 3 WEEKS, START DATE OF MOST RECENT DOSE (375 MG/M2) OF STUDY DRUG PRIOR TO AE/SAE 1
     Route: 042
     Dates: start: 20220119
  2. CYCLOPHOSPHAMIDE [Suspect]
     Active Substance: CYCLOPHOSPHAMIDE
     Indication: Diffuse large B-cell lymphoma
     Dosage: 750 MG/M2, EVERY 3 WEEKS (START DATE OF MOST RECENT DOSE (750 MG/M2) OF STUDY DRUG PRIOR TO AE/SAE 1
     Route: 042
     Dates: start: 20220119
  3. DOXORUBICIN [Suspect]
     Active Substance: DOXORUBICIN
     Indication: Diffuse large B-cell lymphoma
     Dosage: 50 MG/M2 EVERY 3 WEEKS, START DATE OF MOST RECENT DOSE (50 MG/M2) OF STUDY DRUG PRIOR TO AE/SAE 19-J
     Route: 042
     Dates: start: 20220119
  4. PREDNISONE [Suspect]
     Active Substance: PREDNISONE
     Indication: Diffuse large B-cell lymphoma
     Dosage: 100MG, START DATE OF MOST RECENT DOSE (100 MG) OF STUDY DRUG PRIOR TO AE/SAE 23/JAN/2022 9 AM
     Route: 048
     Dates: start: 20220120
  5. METHYLPREDNISOLONE [Suspect]
     Active Substance: METHYLPREDNISOLONE
     Indication: Diffuse large B-cell lymphoma
     Dosage: 80MG, START DATE OF MOST RECENT DOSE (80 MG) OF STUDY DRUG PRIOR TO AE/SAE 19/JAN/2022 AT 10.23AM
     Route: 048
     Dates: start: 20220119
  6. VINCRISTINE [Suspect]
     Active Substance: VINCRISTINE
     Indication: Diffuse large B-cell lymphoma
     Dosage: 1.4 MG/M2 EVERY 3 WEEKS (START DATE OF MOST RECENT DOSE (1.4 MG/M2) OF STUDY DRUG PRIOR TO AE/SAE 19
     Route: 042
     Dates: start: 20220119
  7. ALLOPURINOL [Concomitant]
     Active Substance: ALLOPURINOL
     Indication: Hyperuricaemia
  8. CARDIOASPIRINA [Concomitant]
     Active Substance: ASPIRIN
     Indication: Carotid arteriosclerosis
  9. ALFUZOSIN [Concomitant]
     Active Substance: ALFUZOSIN
     Indication: Benign prostatic hyperplasia
  10. ACETAMINOPHEN [Concomitant]
     Active Substance: ACETAMINOPHEN
     Dosage: 1000 MG
     Dates: start: 20220119, end: 20220119
  11. CHLORTHALIDONE [Concomitant]
     Active Substance: CHLORTHALIDONE
     Indication: Hypertension
     Dosage: UNK
     Dates: start: 20220208
  12. BACTRIM [Concomitant]
     Active Substance: SULFAMETHOXAZOLE\TRIMETHOPRIM
     Dosage: UNK
     Dates: start: 20220118
  13. METHYLPREDNISOLONE [Concomitant]
     Active Substance: METHYLPREDNISOLONE
     Dosage: 80 MG
     Dates: start: 20220119, end: 20220119
  14. FASTURTEC [Concomitant]
     Active Substance: RASBURICASE
     Dosage: UNK
     Dates: start: 20220119, end: 20220119
  15. PREDNISONE [Concomitant]
     Active Substance: PREDNISONE
     Indication: Abdominal pain
  16. AMLODIPINE BESYLATE\PERINDOPRIL ARGININE [Concomitant]
     Active Substance: AMLODIPINE BESYLATE\PERINDOPRIL ARGININE
     Indication: Hypertension
  17. PANTOPRAZOLE SODIUM [Concomitant]
     Active Substance: PANTOPRAZOLE SODIUM
     Dosage: UNK
     Dates: start: 20220113
  18. POTASSIUM [Concomitant]
     Active Substance: POTASSIUM
     Indication: Blood potassium decreased
     Dosage: UNK
     Dates: start: 20220213
  19. SIMVASTATIN [Concomitant]
     Active Substance: SIMVASTATIN
     Indication: Dyslipidaemia
  20. CLOREXIDINA [Concomitant]
     Dosage: UNK
     Dates: start: 20220113
  21. ONDANSETRON [Concomitant]
     Active Substance: ONDANSETRON
     Dosage: 8 MG
     Dates: start: 20220119, end: 20220119
  22. VALACYCLOVIR HYDROCHLORIDE [Concomitant]
     Active Substance: VALACYCLOVIR HYDROCHLORIDE
     Dosage: UNK
     Dates: start: 20220118

REACTIONS (2)
  - Death [Fatal]
  - Pyrexia [Recovered/Resolved]

NARRATIVE: CASE EVENT DATE: 20220205
